FAERS Safety Report 5356607-0 (Version None)
Quarter: 2007Q2

REPORT INFORMATION
  Report Type: 
  Country: None (occurrence: None)
  Receive Date: 20070614
  Receipt Date: 20070608
  Transmission Date: 20071010
  Serious: Yes (Death)
  Sender: FDA-Public Use
  Company Number: PHEH2007US08429

PATIENT
  Age: 61 Year
  Sex: Male
  Weight: 92.97 kg

DRUGS (5)
  1. COREG [Concomitant]
     Dosage: 12.5 MG, TID
  2. INSPRA [Concomitant]
     Dosage: 50 MG, QD
  3. FUROSEMIDE [Concomitant]
     Dosage: 40 MG, QD
  4. CLONIDINE [Concomitant]
     Dosage: 0.1MG, QW
     Route: 062
  5. TEKTURNA [Suspect]
     Indication: HYPERTENSION
     Dosage: 300 MG, QD
     Route: 048
     Dates: start: 20070530

REACTIONS (2)
  - CEREBROVASCULAR ACCIDENT [None]
  - LOSS OF CONSCIOUSNESS [None]
